FAERS Safety Report 9793115 (Version 2)
Quarter: 2014Q2

REPORT INFORMATION
  Report Type: Spontaneous
  Country: US (occurrence: US)
  Receive Date: 20140102
  Receipt Date: 20140509
  Transmission Date: 20141212
  Serious: Yes (Other)
  Sender: FDA-Public Use
  Company Number: US-BAYER-2013-159566

PATIENT
  Age: 25 Year
  Sex: Female
  Weight: 69.39 kg

DRUGS (2)
  1. MIRENA [Suspect]
     Indication: CONTRACEPTION
     Dosage: 20 MCG/24HR, CONT
     Route: 015
     Dates: start: 20131220, end: 20131220
  2. LIDOCAINE [Concomitant]
     Dosage: UNK
     Dates: start: 20131220

REACTIONS (3)
  - Device difficult to use [None]
  - Uterine perforation [None]
  - Procedural pain [None]
